FAERS Safety Report 14920472 (Version 3)
Quarter: 2018Q4

REPORT INFORMATION
  Report Type: Spontaneous
  Country: LT (occurrence: LT)
  Receive Date: 20180521
  Receipt Date: 20181226
  Transmission Date: 20190204
  Serious: Yes (Other)
  Sender: FDA-Public Use
  Company Number: LT-ABBVIE-18P-234-2356563-00

PATIENT
  Age: 19 Year
  Sex: Female

DRUGS (1)
  1. VALPROIC ACID. [Suspect]
     Active Substance: VALPROIC ACID
     Indication: EPILEPSY
     Route: 065

REACTIONS (15)
  - Stevens-Johnson syndrome [Unknown]
  - Conjunctival hyperaemia [Unknown]
  - Erythema [Unknown]
  - Blister [Unknown]
  - Skin injury [Unknown]
  - Burning sensation [Unknown]
  - Bone pain [Unknown]
  - Hyperaesthesia [Unknown]
  - Skin hyperpigmentation [Recovered/Resolved with Sequelae]
  - Pyrexia [Unknown]
  - Asthenia [Unknown]
  - Toxic epidermal necrolysis [Recovered/Resolved with Sequelae]
  - Eye irritation [Unknown]
  - Mucosal erosion [Unknown]
  - Condition aggravated [Unknown]
